FAERS Safety Report 8425996-2 (Version None)
Quarter: 2012Q2

REPORT INFORMATION
  Report Type: 
  Country: None (occurrence: None)
  Receive Date: 20120611
  Receipt Date: 20120531
  Transmission Date: 20120825
  Serious: Yes (Other)
  Sender: FDA-Public Use
  Company Number: GB-SANOFI-AVENTIS-2012SA039305

PATIENT
  Age: 29 Year
  Sex: Male

DRUGS (6)
  1. ISONIAZID [Suspect]
     Indication: TUBERCULOSIS GASTROINTESTINAL
     Route: 065
  2. RIFAMPICIN [Interacting]
     Indication: TUBERCULOSIS GASTROINTESTINAL
     Route: 065
  3. ANTIPSYCHOTICS [Interacting]
     Dosage: DOSE INCREASED
     Route: 065
  4. ANTIPSYCHOTICS [Interacting]
     Dosage: DOSE INCREASED
     Route: 065
  5. ETHAMBUTOL HYDROCHLORIDE [Interacting]
     Indication: TUBERCULOSIS GASTROINTESTINAL
     Route: 065
  6. PYRAZINAMIDE [Concomitant]
     Indication: TUBERCULOSIS GASTROINTESTINAL

REACTIONS (2)
  - DRUG INTERACTION [None]
  - PSYCHOTIC DISORDER [None]
